FAERS Safety Report 4694504-4 (Version None)
Quarter: 2005Q2

REPORT INFORMATION
  Report Type: 
  Country: None (occurrence: None)
  Receive Date: 20050614
  Receipt Date: 20050407
  Transmission Date: 20051028
  Serious: No
  Sender: FDA-Public Use
  Company Number: USA050495157

PATIENT
  Age: 59 Year
  Sex: Male

DRUGS (3)
  1. CIALIS [Suspect]
     Indication: ERECTILE DYSFUNCTION
     Dosage: 20 MG
     Dates: start: 20040501
  2. ENBREL [Concomitant]
  3. PRAVACHOL [Concomitant]

REACTIONS (3)
  - MUSCLE SPASMS [None]
  - MYALGIA [None]
  - PAIN [None]
